FAERS Safety Report 7113515-2 (Version None)
Quarter: 2010Q4

REPORT INFORMATION
  Report Type: 
  Country: None (occurrence: None)
  Receive Date: 20101119
  Receipt Date: 20101110
  Transmission Date: 20110411
  Serious: Yes (Death, Hospitalization, Other)
  Sender: FDA-Public Use
  Company Number: US-PFIZER INC-2010145910

PATIENT
  Sex: Female

DRUGS (2)
  1. CORDARONE [Suspect]
     Dosage: UNK
     Route: 048
     Dates: start: 20000101, end: 20020101
  2. PACERONE [Suspect]
     Dosage: UNK
     Route: 048
     Dates: start: 20000101, end: 20020101

REACTIONS (2)
  - PULMONARY FIBROSIS [None]
  - PULMONARY TOXICITY [None]
